FAERS Safety Report 4308580-1 (Version None)
Quarter: 2004Q1

REPORT INFORMATION
  Report Type: 
  Country: None (occurrence: None)
  Receive Date: 20040301
  Receipt Date: 20040224
  Transmission Date: 20041129
  Serious: Yes (Hospitalization)
  Sender: FDA-Public Use
  Company Number: WAES 0402DEU00154

PATIENT
  Age: 40 Year
  Sex: Female

DRUGS (2)
  1. ZOCOR [Suspect]
     Indication: HYPERCHOLESTEROLAEMIA
     Route: 048
  2. ZOCOR [Suspect]
     Route: 048

REACTIONS (3)
  - DRUG INTERACTION [None]
  - FOOD INTERACTION [None]
  - RHABDOMYOLYSIS [None]
